FAERS Safety Report 6769349-1 (Version None)
Quarter: 2010Q2

REPORT INFORMATION
  Report Type: 
  Country: None (occurrence: None)
  Receive Date: 20100607
  Receipt Date: 20100525
  Transmission Date: 20101027
  Serious: Yes (Other)
  Sender: FDA-Public Use
  Company Number: B0658107A

PATIENT
  Sex: Male

DRUGS (3)
  1. FLUTICASONE PROPIONATE [Suspect]
     Indication: ASTHMA
     Dosage: 250 MCG/ TWICE PER DAY/ INHALED
     Dates: start: 20060501
  2. PREDNISOLONE [Suspect]
     Indication: ASTHMA
     Dosage: ORAL
     Route: 048
  3. ALBUTEROL SULFATE AUTOHALER [Concomitant]

REACTIONS (3)
  - ADRENAL SUPPRESSION [None]
  - ASTHMA [None]
  - CONDITION AGGRAVATED [None]
